FAERS Safety Report 5887802-X (Version None)
Quarter: 2008Q3

REPORT INFORMATION
  Report Type: 
  Country: None (occurrence: None)
  Receive Date: 20080917
  Receipt Date: 20080917
  Transmission Date: 20090109
  Serious: Yes (Other)
  Sender: FDA-Public Use
  Company Number: None

PATIENT
  Age: 35 Year
  Sex: Female
  Weight: 68.0396 kg

DRUGS (1)
  1. DIAZEPAM [Suspect]
     Indication: INSOMNIA
     Dosage: 5 MG DAILY PO
     Route: 048
     Dates: start: 20080911, end: 20080915

REACTIONS (3)
  - NO THERAPEUTIC RESPONSE [None]
  - PRURITUS GENERALISED [None]
  - RASH [None]
